FAERS Safety Report 10229978 (Version 1)
Quarter: 2014Q2

REPORT INFORMATION
  Report Type: Spontaneous
  Country: US (occurrence: None)
  Receive Date: 20140610
  Receipt Date: 20140610
  Transmission Date: 20141212
  Serious: Yes (Life-Threatening, Hospitalization, Disabling)
  Sender: FDA-Public Use
  Company Number: None

PATIENT
  Age: 42 Year
  Sex: Female
  Weight: 45.36 kg

DRUGS (3)
  1. IMITREX [Suspect]
     Indication: MIGRAINE
     Dosage: 100, UNKNOWN, INTO A VEIN?
  2. IMITREX [Suspect]
     Indication: URINARY TRACT INFECTION
     Dosage: 100, UNKNOWN, INTO A VEIN?
  3. CIPROFLAXIN [Suspect]
     Dosage: SEDATED, UNKNOWN, UNKNOWN

REACTIONS (12)
  - Migraine [None]
  - Crying [None]
  - Pneumothorax [None]
  - Dyspnoea [None]
  - Fall [None]
  - Unresponsive to stimuli [None]
  - Cerebral infarction [None]
  - Cerebrovascular accident [None]
  - Hemiplegia [None]
  - Loss of employment [None]
  - Cardiac disorder [None]
  - Respiratory arrest [None]
